FAERS Safety Report 21465374 (Version 2)
Quarter: 2022Q4

REPORT INFORMATION
  Report Type: Spontaneous
  Country: US (occurrence: US)
  Receive Date: 20221017
  Receipt Date: 20221124
  Transmission Date: 20230112
  Serious: Yes (Other)
  Sender: FDA-Public Use
  Company Number: US-NEBO-PC009246

PATIENT

DRUGS (1)
  1. MONOFERRIC [Suspect]
     Active Substance: FERRIC DERISOMALTOSE
     Indication: Product used for unknown indication
     Route: 050
     Dates: start: 202209, end: 202209

REACTIONS (6)
  - Erythema [Recovered/Resolved]
  - Muscle contractions involuntary [Recovered/Resolved]
  - Unresponsive to stimuli [Recovering/Resolving]
  - Irregular breathing [Recovered/Resolved]
  - Urinary incontinence [Unknown]
  - Hypertension [Unknown]

NARRATIVE: CASE EVENT DATE: 20220901
